FAERS Safety Report 5073837-6 (Version None)
Quarter: 2006Q3

REPORT INFORMATION
  Report Type: 
  Country: None (occurrence: None)
  Receive Date: 20060808
  Receipt Date: 20050531
  Transmission Date: 20061208
  Serious: No
  Sender: FDA-Public Use
  Company Number: US-AMGEN-KDL136631

PATIENT
  Sex: Female
  Weight: 37.2 kg

DRUGS (8)
  1. PROCRIT [Suspect]
     Indication: MYELODYSPLASTIC SYNDROME
     Dates: start: 20050520
  2. COZAAR [Concomitant]
  3. KEPPRA [Concomitant]
  4. VITAMINS [Concomitant]
  5. FERRUM [Concomitant]
  6. XANAX [Concomitant]
  7. MORPHINE [Concomitant]
  8. SOMA [Concomitant]

REACTIONS (2)
  - PLATELET COUNT DECREASED [None]
  - SEASONAL ALLERGY [None]
